FAERS Safety Report 7609277-2 (Version None)
Quarter: 2011Q3

REPORT INFORMATION
  Report Type: 
  Country: None (occurrence: None)
  Receive Date: 20110714
  Receipt Date: 20110711
  Transmission Date: 20111222
  Serious: Yes (Other)
  Sender: FDA-Public Use
  Company Number: US-PFIZER INC-2011069792

PATIENT
  Sex: Female

DRUGS (18)
  1. CHANTIX [Suspect]
     Indication: SMOKING CESSATION THERAPY
     Dosage: SAMPLE PACK
     Dates: start: 20060929, end: 20061029
  2. HYDROCODONE [Concomitant]
     Indication: PAIN
     Dosage: UNK
     Dates: start: 20060101
  3. AUGMENTIN '125' [Concomitant]
     Indication: BRONCHITIS
  4. AZITHROMYCIN [Concomitant]
     Indication: BRONCHITIS
  5. LIPITOR [Concomitant]
     Indication: BLOOD CHOLESTEROL INCREASED
     Dosage: UNK
     Dates: start: 20040101
  6. CHANTIX [Suspect]
     Dosage: STARTER PACK, 1MG CONTINUING PACKS
     Dates: start: 20080122, end: 20080710
  7. AUGMENTIN '125' [Concomitant]
     Indication: PNEUMONIA
     Dosage: UNK
     Dates: start: 20050101, end: 20100101
  8. CHANTIX [Suspect]
     Dosage: STARTER PACK, 1MG CONTINUING PACKS
     Dates: start: 20070517, end: 20071201
  9. DOXYCYCLINE [Concomitant]
     Indication: BRONCHITIS
  10. OXYCODONE [Concomitant]
     Indication: PAIN
     Dosage: UNK
     Dates: start: 20040101
  11. COMBIVENT [Concomitant]
     Indication: CHRONIC OBSTRUCTIVE PULMONARY DISEASE
  12. DOXYCYCLINE [Concomitant]
     Indication: PNEUMONIA
     Dosage: UNK
     Dates: start: 20060101, end: 20100101
  13. AZITHROMYCIN [Concomitant]
     Indication: PNEUMONIA
     Dosage: UNK
     Dates: start: 20040101, end: 20110101
  14. ACIPHEX [Concomitant]
     Indication: GASTROOESOPHAGEAL REFLUX DISEASE
     Dosage: UNK
     Dates: start: 20060101
  15. METFORMIN [Concomitant]
     Indication: DIABETES MELLITUS
     Dosage: UNK
     Dates: start: 20060101
  16. NAPROXEN [Concomitant]
     Indication: PAIN
     Dosage: UNK
     Dates: start: 20050101, end: 20110101
  17. ALPRAZOLAM [Concomitant]
     Indication: ANXIETY
     Dosage: UNK
     Dates: start: 20060101, end: 20080101
  18. COMBIVENT [Concomitant]
     Indication: ASTHMA
     Dosage: UNK
     Dates: start: 20060101, end: 20080101

REACTIONS (7)
  - HYPOAESTHESIA [None]
  - DRY MOUTH [None]
  - PALPITATIONS [None]
  - COGNITIVE DISORDER [None]
  - DEPRESSION [None]
  - ANXIETY [None]
  - DIZZINESS [None]
